FAERS Safety Report 8062405-X (Version None)
Quarter: 2012Q1

REPORT INFORMATION
  Report Type: 
  Country: None (occurrence: None)
  Receive Date: 20120123
  Receipt Date: 20120118
  Transmission Date: 20120608
  Serious: Yes (Other)
  Sender: FDA-Public Use
  Company Number: US-JNJFOC-20111212054

PATIENT
  Sex: Female

DRUGS (5)
  1. LEXAPRO [Concomitant]
     Indication: DEPRESSION
     Route: 065
  2. SYNTHROID [Concomitant]
     Indication: HYPOTHYROIDISM
     Route: 065
  3. NUCYNTA ER [Suspect]
     Route: 048
     Dates: start: 20111116, end: 20111125
  4. NUCYNTA ER [Suspect]
     Route: 048
  5. NUCYNTA ER [Suspect]
     Indication: BACK PAIN
     Route: 048

REACTIONS (4)
  - FATIGUE [None]
  - MOOD SWINGS [None]
  - PARAESTHESIA [None]
  - HYPOAESTHESIA [None]
